FAERS Safety Report 12771894 (Version 1)
Quarter: 2016Q3

REPORT INFORMATION
  Report Type: Spontaneous
  Country: JP (occurrence: JP)
  Receive Date: 20160922
  Receipt Date: 20160922
  Transmission Date: 20161109
  Serious: Yes (Other)
  Sender: FDA-Public Use
  Company Number: JP-G+W LABS-GW2016JP000131

PATIENT

DRUGS (4)
  1. TRIAMCINOLONE ACETONIDE. [Suspect]
     Active Substance: TRIAMCINOLONE ACETONIDE
     Indication: BEHCET^S SYNDROME
     Route: 050
  2. ASPIRIN. [Concomitant]
     Active Substance: ASPIRIN
     Indication: BEHCET^S SYNDROME
     Dosage: 100 MG, QD
     Route: 048
     Dates: start: 2004
  3. PREDNISOLONE. [Concomitant]
     Active Substance: PREDNISOLONE
     Indication: BEHCET^S SYNDROME
     Dosage: 7.5 MG, QD
     Route: 065
     Dates: start: 2004
  4. BETAMETHASONE. [Concomitant]
     Active Substance: BETAMETHASONE
     Indication: BEHCET^S SYNDROME
     Dosage: UNK
     Route: 061
     Dates: start: 2004

REACTIONS (1)
  - Orbital infection [Recovered/Resolved]
